FAERS Safety Report 8762818 (Version 1)
Quarter: 2012Q4

REPORT INFORMATION
  Report Type: 
  Country: FR (occurrence: FR)
  Receive Date: 20120830
  Receipt Date: 20120830
  Transmission Date: 20130627
  Serious: Yes (Other)
  Sender: FDA-Public Use
  Company Number: FR-PFIZER INC-2012208434

PATIENT
  Age: 49 Year
  Sex: Female

DRUGS (4)
  1. NEURONTIN [Suspect]
     Dosage: UNK
     Route: 048
     Dates: start: 201201, end: 20120615
  2. TARKA [Suspect]
     Dosage: UNK
     Route: 048
     Dates: start: 2007
  3. PARACETAMOL [Suspect]
     Dosage: UNK
     Route: 048
     Dates: start: 201205, end: 20120615
  4. SKENAN [Concomitant]
     Dosage: UNK
     Route: 048
     Dates: start: 201205

REACTIONS (3)
  - Cholestasis [Unknown]
  - Blood alkaline phosphatase increased [Unknown]
  - Gamma-glutamyltransferase increased [Unknown]
